FAERS Safety Report 18717276 (Version 3)
Quarter: 2021Q1

REPORT INFORMATION
  Report Type: Spontaneous
  Country: DE (occurrence: DE)
  Receive Date: 20210108
  Receipt Date: 20210212
  Transmission Date: 20210419
  Serious: Yes (Other)
  Sender: FDA-Public Use
  Company Number: DE-PFIZER INC-2021004604

PATIENT
  Age: 69 Year
  Sex: Male

DRUGS (2)
  1. VIAGRA [Suspect]
     Active Substance: SILDENAFIL CITRATE
     Indication: ERECTILE DYSFUNCTION
     Dosage: UNK
     Dates: start: 20201212
  2. NUSTENDI [Interacting]
     Active Substance: BEMPEDOIC ACID\EZETIMIBE
     Indication: LOW DENSITY LIPOPROTEIN INCREASED
     Dosage: UNK
     Dates: start: 20201207, end: 20201228

REACTIONS (19)
  - Alcohol intolerance [Recovering/Resolving]
  - Muscle rupture [Recovering/Resolving]
  - Pruritus [Recovering/Resolving]
  - Faeces hard [Recovering/Resolving]
  - Eye haemorrhage [Recovering/Resolving]
  - Abdominal discomfort [Recovering/Resolving]
  - Faeces discoloured [Recovering/Resolving]
  - Diarrhoea [Recovering/Resolving]
  - Muscle spasms [Recovering/Resolving]
  - Chills [Recovered/Resolved]
  - Hyperhidrosis [Recovered/Resolved]
  - Anxiety [Recovering/Resolving]
  - Hypothermia [Recovered/Resolved]
  - Treatment noncompliance [Unknown]
  - Flatulence [Recovering/Resolving]
  - Drug interaction [Recovering/Resolving]
  - Chest pain [Not Recovered/Not Resolved]
  - Myalgia [Recovering/Resolving]
  - Hypoaesthesia [Recovering/Resolving]

NARRATIVE: CASE EVENT DATE: 202012
